FAERS Safety Report 9116519 (Version 1)
Quarter: 2013Q1

REPORT INFORMATION
  Report Type: Spontaneous
  Country: FR (occurrence: FR)
  Receive Date: 20130225
  Receipt Date: 20130225
  Transmission Date: 20140127
  Serious: Yes (Other)
  Sender: FDA-Public Use
  Company Number: FR-US-EMD SERONO, INC.-7194495

PATIENT
  Age: 34 Year
  Sex: Female

DRUGS (3)
  1. OVITRELLE [Suspect]
     Indication: OVULATION INDUCTION
     Route: 058
     Dates: start: 20110404, end: 20110404
  2. DECAPEPTYL [Suspect]
     Indication: OVULATION INDUCTION
     Route: 058
     Dates: start: 20110324, end: 20110403
  3. PUREGON [Suspect]
     Indication: OVULATION INDUCTION
     Route: 058
     Dates: start: 20110324, end: 20110403

REACTIONS (2)
  - Ovarian hyperstimulation syndrome [Recovered/Resolved]
  - Ascites [Recovered/Resolved]
